FAERS Safety Report 7720296-8 (Version None)
Quarter: 2011Q3

REPORT INFORMATION
  Report Type: 
  Country: None (occurrence: None)
  Receive Date: 20110831
  Receipt Date: 20110817
  Transmission Date: 20111222
  Serious: Yes (Hospitalization)
  Sender: FDA-Public Use
  Company Number: BR-US-EMD SERONO, INC.-7077615

PATIENT
  Sex: Female

DRUGS (6)
  1. REBIF [Suspect]
     Indication: RELAPSING-REMITTING MULTIPLE SCLEROSIS
     Route: 058
     Dates: start: 20100319
  2. CITALOPRAM [Concomitant]
  3. VITAMIN B [Concomitant]
  4. CAPTOPRIL [Concomitant]
  5. IMOSEC [Concomitant]
  6. LEXOTAN [Concomitant]

REACTIONS (3)
  - INJECTION SITE ABSCESS [None]
  - FALL [None]
  - ORTHOPEDIC PROCEDURE [None]
